FAERS Safety Report 24767245 (Version 1)
Quarter: 2024Q4

REPORT INFORMATION
  Report Type: Spontaneous
  Country: US (occurrence: None)
  Receive Date: 20241220
  Receipt Date: 20241220
  Transmission Date: 20250114
  Serious: Yes (Disabling)
  Sender: Public
  Company Number: None

PATIENT
  Age: 52 Year
  Sex: Female
  Weight: 72 kg

DRUGS (11)
  1. HALOPERIDOL DECANOATE [Suspect]
     Active Substance: HALOPERIDOL DECANOATE
     Indication: Bipolar disorder
  2. LEVOTHYROXINE [Concomitant]
     Active Substance: LEVOTHYROXINE
  3. PANTOPRAZOLE [Concomitant]
     Active Substance: PANTOPRAZOLE
  4. PRAVASTATIN [Concomitant]
     Active Substance: PRAVASTATIN
  5. LAMOTRIGINE [Concomitant]
     Active Substance: LAMOTRIGINE
  6. CABERGOLINE [Concomitant]
     Active Substance: CABERGOLINE
  7. SPIRONOLACTONE [Concomitant]
     Active Substance: SPIRONOLACTONE
  8. TESTOSTERONE [Concomitant]
     Active Substance: TESTOSTERONE
  9. PROGESTERONE [Concomitant]
     Active Substance: PROGESTERONE
  10. ESTROGENS [Concomitant]
     Active Substance: ESTROGENS
  11. TIRZEPATIDE [Concomitant]
     Active Substance: TIRZEPATIDE

REACTIONS (1)
  - Deafness [None]

NARRATIVE: CASE EVENT DATE: 20240716
